FAERS Safety Report 8062204-9 (Version None)
Quarter: 2012Q1

REPORT INFORMATION
  Report Type: 
  Country: None (occurrence: None)
  Receive Date: 20120123
  Receipt Date: 20120112
  Transmission Date: 20120608
  Serious: Yes (Other)
  Sender: FDA-Public Use
  Company Number: JP-BRISTOL-MYERS SQUIBB COMPANY-16319766

PATIENT
  Age: 55 Year
  Sex: Male

DRUGS (8)
  1. LIVALO [Concomitant]
  2. METFORMIN HCL [Suspect]
     Indication: TYPE 2 DIABETES MELLITUS
     Route: 048
     Dates: start: 20110830
  3. DABIGATRAN ETEXILATE [Concomitant]
     Dosage: 4 CAPS/DAY
  4. LANIRAPID [Concomitant]
  5. PILSICAINIDE HCL [Concomitant]
  6. TORSEMIDE [Concomitant]
  7. ETHYL ICOSAPENTATE [Concomitant]
     Route: 048
  8. ALLOPURINOL [Concomitant]
     Route: 048

REACTIONS (1)
  - ATRIAL FIBRILLATION [None]
